FAERS Safety Report 5849680-4 (Version None)
Quarter: 2008Q3

REPORT INFORMATION
  Report Type: 
  Country: None (occurrence: None)
  Receive Date: 20080818
  Receipt Date: 20080818
  Transmission Date: 20090109
  Serious: Yes (Other)
  Sender: FDA-Public Use
  Company Number: None

PATIENT
  Age: 37 Year
  Sex: Female
  Weight: 64.4108 kg

DRUGS (2)
  1. SPRINTEC [Suspect]
     Indication: CONTRACEPTION
     Dosage: 1 DAILY PO
     Route: 048
     Dates: start: 20080811, end: 20080812
  2. SPRINTEC [Suspect]
     Indication: MENSTRUAL DISORDER
     Dosage: 1 DAILY PO
     Route: 048
     Dates: start: 20080811, end: 20080812

REACTIONS (4)
  - ASTHENIA [None]
  - HEADACHE [None]
  - VERTIGO [None]
  - VOMITING [None]
